FAERS Safety Report 15358404 (Version 1)
Quarter: 2018Q3

REPORT INFORMATION
  Report Type: Report from Study
  Country: US (occurrence: US)
  Receive Date: 20180906
  Receipt Date: 20180906
  Transmission Date: 20181010
  Serious: Yes (Death, Hospitalization, Other)
  Sender: FDA-Public Use
  Company Number: US-GLAXOSMITHKLINE-US2018GSK160183

PATIENT
  Age: 54 Year
  Sex: Female

DRUGS (2)
  1. BUPROPION HYDROCHLORIDE. [Suspect]
     Active Substance: BUPROPION HYDROCHLORIDE
     Indication: PRODUCT USED FOR UNKNOWN INDICATION
     Dosage: 100 MG EXTENDED RELEASE TABLET
     Route: 065
  2. UCERIS [Suspect]
     Active Substance: BUDESONIDE
     Indication: PRODUCT USED FOR UNKNOWN INDICATION
     Dosage: 9 MG EXTENDED RELEASE TABLET
     Route: 065

REACTIONS (2)
  - Hospitalisation [Recovered/Resolved]
  - Death [Fatal]

NARRATIVE: CASE EVENT DATE: 201808
